FAERS Safety Report 13770985 (Version 1)
Quarter: 2017Q3

REPORT INFORMATION
  Report Type: Spontaneous
  Country: US (occurrence: US)
  Receive Date: 20170720
  Receipt Date: 20170720
  Transmission Date: 20171127
  Serious: Yes (Disabling)
  Sender: FDA-Public Use
  Company Number: None

PATIENT
  Age: 65 Year
  Sex: Female
  Weight: 83.25 kg

DRUGS (6)
  1. LEVAQUIN [Suspect]
     Active Substance: LEVOFLOXACIN
     Indication: SINUSITIS
     Route: 048
  2. CARBIDOPA. [Concomitant]
     Active Substance: CARBIDOPA
  3. COQ10 [Concomitant]
     Active Substance: UBIDECARENONE
  4. BLOOD PRESSURE MED [Concomitant]
  5. REFLUX MED [Concomitant]
  6. MARIPEX [Concomitant]

REACTIONS (8)
  - Eye pain [None]
  - Pain [None]
  - Arthralgia [None]
  - Pruritus generalised [None]
  - Tendon pain [None]
  - Impaired work ability [None]
  - Gait disturbance [None]
  - Neuropathy peripheral [None]

NARRATIVE: CASE EVENT DATE: 20160622
